FAERS Safety Report 4577210-6 (Version None)
Quarter: 2005Q1

REPORT INFORMATION
  Report Type: 
  Country: None (occurrence: None)
  Receive Date: 20050210
  Receipt Date: 20050131
  Transmission Date: 20050727
  Serious: Yes (Hospitalization)
  Sender: FDA-Public Use
  Company Number: PHHO2005JP02117

PATIENT
  Age: 70 Year
  Sex: Male

DRUGS (5)
  1. DIOVAN [Suspect]
     Indication: CARDIAC FAILURE
     Dosage: UNK, UNK
     Dates: start: 20041210, end: 20050122
  2. WARFARIN SODIUM [Concomitant]
     Dates: start: 20041124, end: 20050122
  3. ASPIRIN [Concomitant]
     Dosage: UNK, UNK
     Dates: start: 20041020, end: 20050131
  4. ARTIST [Concomitant]
     Dates: start: 20041022, end: 20050128
  5. LASIX [Concomitant]
     Dates: start: 20041022, end: 20050131

REACTIONS (3)
  - HEPATIC FUNCTION ABNORMAL [None]
  - PLATELET COUNT DECREASED [None]
  - RASH GENERALISED [None]
